FAERS Safety Report 16057484 (Version 2)
Quarter: 2021Q1

REPORT INFORMATION
  Report Type: Other
  Country: DE (occurrence: DE)
  Receive Date: 20190311
  Receipt Date: 20210319
  Transmission Date: 20210419
  Serious: Yes (Other)
  Sender: FDA-Public Use
  Company Number: DE-ROCHE-2279521

PATIENT

DRUGS (10)
  1. ETOPOSIDE. [Suspect]
     Active Substance: ETOPOSIDE
     Dosage: MEGACHOEP REGIMEN: 600 MG/M2 IN CYCLE ONE, 960 MG/M2 IN CYCLES TWO AND THREE, AND 1480 MG/M2 IN CYCL
     Route: 042
  2. DOXORUBICIN [Suspect]
     Active Substance: DOXORUBICIN
     Indication: DIFFUSE LARGE B-CELL LYMPHOMA
     Route: 042
  3. PREDNISONE. [Suspect]
     Active Substance: PREDNISONE
     Indication: DIFFUSE LARGE B-CELL LYMPHOMA
     Dosage: DAY ?3 TO ?1.
     Route: 048
  4. PREDNISONE. [Suspect]
     Active Substance: PREDNISONE
     Dosage: 1?5 DAYS
     Route: 042
  5. CYCLOPHOSPHAMIDE. [Suspect]
     Active Substance: CYCLOPHOSPHAMIDE
     Indication: DIFFUSE LARGE B-CELL LYMPHOMA
     Route: 042
  6. CYCLOPHOSPHAMIDE. [Suspect]
     Active Substance: CYCLOPHOSPHAMIDE
     Dosage: MEGACHOEP REGIMEN: CYCLOPHOSPHAMIDE 1500 MG/M2 IN CYCLE ONE, 4500 MG/M2 IN CYCLES TWO AND THREE, AND
     Route: 042
  7. DOXORUBICIN [Suspect]
     Active Substance: DOXORUBICIN
     Dosage: MEGACHOEP REGIMEN
     Route: 042
  8. VINCRISTINE [Suspect]
     Active Substance: VINCRISTINE
     Indication: DIFFUSE LARGE B-CELL LYMPHOMA
     Dosage: SINGLE INJECTION DAY 1
     Route: 042
  9. RITUXIMAB. [Suspect]
     Active Substance: RITUXIMAB
     Indication: DIFFUSE LARGE B-CELL LYMPHOMA
     Dosage: ON DAYS 0, 1, 4, 8, 15, 22, 29, 43, 57, 71, 85 AND 99.
     Route: 042
  10. ETOPOSIDE. [Suspect]
     Active Substance: ETOPOSIDE
     Indication: DIFFUSE LARGE B-CELL LYMPHOMA
     Dosage: DAYS 1?3
     Route: 042

REACTIONS (13)
  - Vomiting [Unknown]
  - Infection [Unknown]
  - Constipation [Unknown]
  - Diarrhoea [Unknown]
  - Arrhythmia [Unknown]
  - Mucosal inflammation [Unknown]
  - Neutropenia [Unknown]
  - Thrombocytopenia [Unknown]
  - Nausea [Unknown]
  - Mental disorder [Unknown]
  - Leukopenia [Unknown]
  - Anaemia [Unknown]
  - Sensory processing disorder [Unknown]
